FAERS Safety Report 19253809 (Version 1)
Quarter: 2021Q2

REPORT INFORMATION
  Report Type: Spontaneous
  Country: US (occurrence: US)
  Receive Date: 20210513
  Receipt Date: 20210513
  Transmission Date: 20210717
  Serious: Yes (Other)
  Sender: FDA-Public Use
  Company Number: None

PATIENT
  Age: 75 Year
  Sex: Female
  Weight: 54.9 kg

DRUGS (29)
  1. VITAMIN C [Concomitant]
     Active Substance: ASCORBIC ACID
  2. PROBOOST [Concomitant]
  3. BOTTOMS UP [Concomitant]
     Active Substance: LIDOCAINE
  4. SUPPLEMENTS D [Concomitant]
  5. CALCIUM ASPARTATE ANHYDROUS [Concomitant]
  6. SLEEP FACTORS [Concomitant]
  7. REISHI [Concomitant]
     Active Substance: REISHI
  8. FLEX NOW [Concomitant]
  9. MELATONIN [Concomitant]
     Active Substance: MELATONIN
  10. MAGNESIUM CITRATE. [Concomitant]
     Active Substance: MAGNESIUM CITRATE
  11. CORIOLUS [Concomitant]
  12. FERROCHEL IRON CHELATE [Concomitant]
  13. STRESS?B COMPLEX [Concomitant]
  14. SYNERGY K [Concomitant]
  15. MIRTAZAPINE THYROID SUPPORT [Concomitant]
  16. GAIA HERBS [Concomitant]
  17. MONOLAURENN [Concomitant]
  18. L?THEANINE [Concomitant]
     Active Substance: DIETARY SUPPLEMENT
  19. MEGA MUCOSA [Concomitant]
  20. VITAL PROTEINS [Concomitant]
  21. THERACURMIN HP [Concomitant]
  22. QUERCETIN WITH BROMELAIN [Concomitant]
  23. SILYMARIN [Concomitant]
     Active Substance: DIETARY SUPPLEMENT\HERBALS\MILK THISTLE
  24. LITHIUM OROTATE [Concomitant]
     Active Substance: LITHIUM OROTATE
  25. GLYCEMIC MANAGER [Concomitant]
  26. DENOSUMAB [Suspect]
     Active Substance: DENOSUMAB
     Indication: OSTEOPOROSIS
     Dosage: ?          QUANTITY:5 INJECTION(S);OTHER FREQUENCY:VARIED;?
     Route: 030
     Dates: start: 20170818, end: 20191112
  27. PHARMAGABA [Concomitant]
  28. HISTDAO [Concomitant]
  29. MEGASPOREBIOTIC [Concomitant]

REACTIONS (1)
  - Spinal pain [None]

NARRATIVE: CASE EVENT DATE: 20191112
